FAERS Safety Report 8434779-9 (Version None)
Quarter: 2012Q2

REPORT INFORMATION
  Report Type: 
  Country: None (occurrence: None)
  Receive Date: 20120608
  Receipt Date: 20120608
  Transmission Date: 20120825
  Serious: Yes (Other)
  Sender: FDA-Public Use
  Company Number: None

PATIENT
  Age: 42 Year
  Sex: Female
  Weight: 97.5234 kg

DRUGS (7)
  1. RIOMET [Concomitant]
  2. BUPROPION HCL [Concomitant]
  3. CELEXA [Concomitant]
  4. MAXALT [Concomitant]
  5. ZONISAMIDE [Suspect]
     Indication: MYOCLONUS
     Dosage: 500MG/DAY 2AM, 3 PM PO
     Route: 048
     Dates: start: 20120510, end: 20120607
  6. ZONISAMIDE [Suspect]
     Indication: MIGRAINE
     Dosage: 500MG/DAY 2AM, 3 PM PO
     Route: 048
     Dates: start: 20120510, end: 20120607
  7. LIDODERM [Concomitant]

REACTIONS (3)
  - DRUG EFFECT DECREASED [None]
  - PRODUCT SUBSTITUTION ISSUE [None]
  - DRUG INEFFECTIVE [None]
